FAERS Safety Report 9099151 (Version 1)
Quarter: 2013Q1

REPORT INFORMATION
  Report Type: Spontaneous
  Country: US (occurrence: US)
  Receive Date: 20130213
  Receipt Date: 20130213
  Transmission Date: 20140127
  Serious: No
  Sender: FDA-Public Use
  Company Number: US-TEVA-385471USA

PATIENT
  Age: 62 Year
  Sex: Female
  Weight: 67.19 kg

DRUGS (7)
  1. PROAIR HFA [Suspect]
     Dosage: 540 MICROGRAM DAILY; 360-540 MCG DAILY
     Dates: start: 20130110
  2. IBUPROFEN [Concomitant]
  3. BUDESONIDE [Concomitant]
  4. SYNTHROID [Concomitant]
  5. ALLEGRA [Concomitant]
  6. NASONEX [Concomitant]
  7. QVAR [Interacting]

REACTIONS (6)
  - Nervousness [Not Recovered/Not Resolved]
  - Anxiety [Not Recovered/Not Resolved]
  - Feeling cold [Not Recovered/Not Resolved]
  - Chest discomfort [Not Recovered/Not Resolved]
  - Tremor [Not Recovered/Not Resolved]
  - Crying [Recovered/Resolved]
